FAERS Safety Report 10464257 (Version 1)
Quarter: 2014Q3

REPORT INFORMATION
  Report Type: Spontaneous
  Country: US (occurrence: US)
  Receive Date: 20140919
  Receipt Date: 20140919
  Transmission Date: 20150326
  Serious: Yes (Other)
  Sender: FDA-Public Use
  Company Number: US-MYLANLABS-2014M1004665

PATIENT

DRUGS (2)
  1. WARFARIN [Suspect]
     Active Substance: WARFARIN
     Indication: PULMONARY HYPERTENSION
     Route: 065
  2. WARFARIN [Suspect]
     Active Substance: WARFARIN
     Indication: OFF LABEL USE

REACTIONS (1)
  - Calciphylaxis [Recovering/Resolving]
